FAERS Safety Report 18683624 (Version 1)
Quarter: 2020Q4

REPORT INFORMATION
  Report Type: Spontaneous
  Country: US (occurrence: US)
  Receive Date: 20201230
  Receipt Date: 20201230
  Transmission Date: 20210114
  Serious: Yes (Hospitalization)
  Sender: FDA-Public Use
  Company Number: None

PATIENT
  Age: 66 Year
  Sex: Male

DRUGS (6)
  1. VIZIMPRO [Suspect]
     Active Substance: DACOMITINIB
     Indication: LUNG NEOPLASM MALIGNANT
     Route: 048
     Dates: start: 20190320
  2. LISINOPRIL. [Concomitant]
     Active Substance: LISINOPRIL
  3. MELOXICAM. [Concomitant]
     Active Substance: MELOXICAM
  4. BISOPROL [Concomitant]
     Active Substance: BISOPROLOL FUMARATE
  5. MINOCYCLINE [Concomitant]
     Active Substance: MINOCYCLINE HYDROCHLORIDE
  6. ATORVASTATIN [Concomitant]
     Active Substance: ATORVASTATIN

REACTIONS (1)
  - Cholecystectomy [None]

NARRATIVE: CASE EVENT DATE: 20201223
